FAERS Safety Report 9037240 (Version 1)
Quarter: 2013Q1

REPORT INFORMATION
  Report Type: Spontaneous
  Country: US (occurrence: None)
  Receive Date: 20130123
  Receipt Date: 20130123
  Transmission Date: 20140127
  Serious: Yes (Other)
  Sender: FDA-Public Use
  Company Number: None

PATIENT
  Age: 57 None
  Sex: Female

DRUGS (2)
  1. PEGASYS PEN 180MCG ROCHE [Suspect]
     Indication: HEPATITIS C
     Route: 058
     Dates: start: 20120802, end: 20120803
  2. RIBAPAK 1000MG COMPLIANCE PACK [Suspect]
     Indication: HEPATITIS C
     Route: 048
     Dates: start: 20120802, end: 20120803

REACTIONS (4)
  - Headache [None]
  - Pain [None]
  - Ocular hyperaemia [None]
  - Eye swelling [None]
